FAERS Safety Report 4452721-2 (Version None)
Quarter: 2004Q3

REPORT INFORMATION
  Report Type: 
  Country: None (occurrence: None)
  Receive Date: 20040813
  Receipt Date: 20040622
  Transmission Date: 20050211
  Serious: No
  Sender: FDA-Public Use
  Company Number: S04-USA-03649-01

PATIENT
  Age: 82 Year
  Sex: Male

DRUGS (13)
  1. NAMENDA [Suspect]
     Indication: DEMENTIA ALZHEIMER'S TYPE
     Dosage: 5 MG QD PO
     Route: 048
     Dates: start: 20040429, end: 20040502
  2. NAMENDA [Suspect]
     Indication: DEMENTIA ALZHEIMER'S TYPE
     Dosage: 10 MG BID PO
     Route: 048
     Dates: start: 20040614, end: 20040620
  3. REMINYL [Concomitant]
  4. METFORMIN HCL [Concomitant]
  5. FUROSEMIDE [Concomitant]
  6. GLIPIZIDE [Concomitant]
  7. LOPID [Concomitant]
  8. VERAPAMIL [Concomitant]
  9. DIOVAN [Concomitant]
  10. VITAMIN C [Concomitant]
  11. VITAMIN E [Concomitant]
  12. GINKOBA [Concomitant]
  13. ASPIRIN [Concomitant]

REACTIONS (2)
  - ABNORMAL BEHAVIOUR [None]
  - MEDICATION ERROR [None]
